FAERS Safety Report 5584811-5 (Version None)
Quarter: 2008Q1

REPORT INFORMATION
  Report Type: 
  Country: None (occurrence: None)
  Receive Date: 20080104
  Receipt Date: 20071220
  Transmission Date: 20080703
  Serious: Yes (Other)
  Sender: FDA-Public Use
  Company Number: A0700267A

PATIENT
  Age: 31 Year
  Sex: Female

DRUGS (1)
  1. UREA PEROXIDE [Suspect]
     Indication: CERUMEN REMOVAL
     Dosage: 3 DROP(S)/SINGLE DOSE/EAR DROPS
     Dates: start: 20071201, end: 20071201

REACTIONS (16)
  - DISTURBANCE IN ATTENTION [None]
  - DIZZINESS [None]
  - DYSARTHRIA [None]
  - DYSGEUSIA [None]
  - EAR CANAL ERYTHEMA [None]
  - EAR DISCOMFORT [None]
  - EAR DISORDER [None]
  - EAR PAIN [None]
  - ERYTHEMA [None]
  - HEADACHE [None]
  - HYPOACUSIS [None]
  - HYPOAESTHESIA ORAL [None]
  - LOSS OF CONSCIOUSNESS [None]
  - NERVE INJURY [None]
  - OTORRHOEA [None]
  - PARAESTHESIA ORAL [None]
